FAERS Safety Report 8960475 (Version 1)
Quarter: 2012Q4

REPORT INFORMATION
  Report Type: Spontaneous
  Country: AU (occurrence: None)
  Receive Date: 20121203
  Receipt Date: 20121203
  Transmission Date: 20130627
  Serious: Yes (Other)
  Sender: FDA-Public Use
  Company Number: 2012110054

PATIENT
  Age: 20 Year
  Sex: Male

DRUGS (1)
  1. MESALAZINE [Suspect]
     Indication: ULCERATIVE COLITIS
     Dosage: (1.5 gm, 2 in 1 D)

REACTIONS (3)
  - Pericardial effusion [None]
  - Myopericarditis [None]
  - Ejection fraction decreased [None]
